FAERS Safety Report 8130309-X (Version None)
Quarter: 2012Q1

REPORT INFORMATION
  Report Type: 
  Country: None (occurrence: None)
  Receive Date: 20120210
  Receipt Date: 20120207
  Transmission Date: 20120608
  Serious: Yes (Other)
  Sender: FDA-Public Use
  Company Number: PHHY2012JP010596

PATIENT
  Age: 1 Year

DRUGS (1)
  1. TEGRETOL [Suspect]
     Indication: CONVULSION
     Dosage: UNK
     Route: 048
     Dates: start: 20110501

REACTIONS (1)
  - BLOOD ALKALINE PHOSPHATASE INCREASED [None]
